FAERS Safety Report 9208276 (Version 1)
Quarter: 2013Q2

REPORT INFORMATION
  Report Type: Spontaneous
  Country: BR (occurrence: BR)
  Receive Date: 20130403
  Receipt Date: 20130403
  Transmission Date: 20140414
  Serious: Yes (Death)
  Sender: FDA-Public Use
  Company Number: BR-PFIZER INC-2013104322

PATIENT
  Age: 65 Year
  Sex: Male

DRUGS (1)
  1. CITALOR [Suspect]
     Indication: BLOOD TRIGLYCERIDES
     Dosage: 20 MG, 1X/DAY
     Route: 048

REACTIONS (2)
  - Lung neoplasm malignant [Fatal]
  - Oesophageal carcinoma [Fatal]
